FAERS Safety Report 13787706 (Version 1)
Quarter: 2017Q3

REPORT INFORMATION
  Report Type: Spontaneous
  Country: US (occurrence: US)
  Receive Date: 20170725
  Receipt Date: 20170725
  Transmission Date: 20171127
  Serious: No
  Sender: FDA-Public Use
  Company Number: US-UNITED THERAPEUTICS-UNT-2017-000775

PATIENT
  Age: 77 Year
  Sex: Female
  Weight: 93.42 kg

DRUGS (2)
  1. ADEMPAS [Concomitant]
     Active Substance: RIOCIGUAT
     Indication: PRODUCT USED FOR UNKNOWN INDICATION
  2. REMODULIN [Suspect]
     Active Substance: TREPROSTINIL
     Indication: PULMONARY ARTERIAL HYPERTENSION
     Dosage: 0.010 ?G/KG, CONTINUING
     Route: 058
     Dates: start: 20161123

REACTIONS (9)
  - Vomiting [Unknown]
  - Epistaxis [Unknown]
  - Diarrhoea [Unknown]
  - Thrombosis [Unknown]
  - Nausea [Unknown]
  - Cough [Recovering/Resolving]
  - Nasal congestion [Unknown]
  - Product physical issue [Unknown]
  - Swelling [Recovering/Resolving]

NARRATIVE: CASE EVENT DATE: 201701
